FAERS Safety Report 20713116 (Version 4)
Quarter: 2022Q2

REPORT INFORMATION
  Report Type: Spontaneous
  Country: VN (occurrence: VN)
  Receive Date: 20220415
  Receipt Date: 20220606
  Transmission Date: 20220721
  Serious: Yes (Life-Threatening, Hospitalization, Other)
  Sender: FDA-Public Use
  Company Number: VN-SA-2022SA130225

PATIENT
  Age: 39 Year
  Sex: Male

DRUGS (4)
  1. ELOXATIN [Suspect]
     Active Substance: OXALIPLATIN
     Indication: Chemotherapy
     Dosage: 200 MG
     Route: 041
     Dates: start: 20220406, end: 20220406
  2. SOLU-MEDROL [Concomitant]
     Active Substance: METHYLPREDNISOLONE SODIUM SUCCINATE
     Indication: Vomiting
     Dosage: 40 MG
     Dates: start: 20220406, end: 20220406
  3. PALONOSETRON [Concomitant]
     Active Substance: PALONOSETRON
     Indication: Vomiting
     Dosage: 0.25 MG
     Dates: start: 20220406, end: 20220406
  4. DEXTROSE [Concomitant]
     Active Substance: DEXTROSE
     Indication: Medication dilution
     Dosage: 500 ML
     Dates: start: 20220406, end: 20220406

REACTIONS (11)
  - Cyanosis [Recovered/Resolved]
  - Urinary incontinence [Recovered/Resolved]
  - Restlessness [Recovered/Resolved]
  - Altered state of consciousness [Recovered/Resolved]
  - Blood pressure abnormal [Recovered/Resolved]
  - Heart rate increased [Recovered/Resolved]
  - Oxygen saturation abnormal [Recovered/Resolved]
  - Seizure [Recovered/Resolved]
  - Fatigue [Recovered/Resolved]
  - Hypoaesthesia [Recovered/Resolved]
  - Dyspnoea [Unknown]

NARRATIVE: CASE EVENT DATE: 20220406
